FAERS Safety Report 8828315 (Version 2)
Quarter: 2012Q4

REPORT INFORMATION
  Report Type: Report from Study
  Country: NL (occurrence: NL)
  Receive Date: 20121005
  Receipt Date: 20121203
  Transmission Date: 20130627
  Serious: Yes (Hospitalization)
  Sender: FDA-Public Use
  Company Number: NL-ABBOTT-12P-114-0990586-00

PATIENT
  Age: 0 None
  Sex: Male
  Weight: 3.17 kg

DRUGS (6)
  1. SYNAGIS [Suspect]
     Indication: PREMATURE BABY
     Dosage: 15 mg/kg body weight
     Route: 030
     Dates: start: 20120913
  2. LACTULOSE [Concomitant]
     Indication: CONSTIPATION
  3. FERRO FUMARATE [Concomitant]
     Indication: ANAEMIA
  4. VITAMIN D [Concomitant]
     Indication: PRODUCT USED FOR UNKNOWN INDICATION
  5. VITAMIN K [Concomitant]
     Indication: PRODUCT USED FOR UNKNOWN INDICATION
  6. XYLOMETHAZOLINE [Concomitant]
     Indication: PRODUCT USED FOR UNKNOWN INDICATION

REACTIONS (3)
  - Respiratory arrest [Recovered/Resolved]
  - Nasopharyngitis [Recovered/Resolved]
  - Choking [Recovered/Resolved]
